FAERS Safety Report 5169166-2 (Version None)
Quarter: 2006Q4

REPORT INFORMATION
  Report Type: 
  Country: None (occurrence: None)
  Receive Date: 20061211
  Receipt Date: 20061201
  Transmission Date: 20070319
  Serious: Yes (Hospitalization)
  Sender: FDA-Public Use
  Company Number: 2006GB02183

PATIENT
  Age: 59 Year
  Sex: Male

DRUGS (11)
  1. ATENOLOL [Suspect]
     Indication: HYPERTENSION
     Route: 048
  2. ATENOLOL [Suspect]
     Indication: BRADYCARDIA
     Route: 048
  3. ASPIRIN [Concomitant]
  4. GTN-S [Concomitant]
     Indication: CHEST PAIN
  5. ISORBIDE [Concomitant]
     Indication: ANGINA PECTORIS
  6. MAALOX FAST BLOCKER [Concomitant]
     Indication: DYSPEPSIA
  7. METFORMIN [Concomitant]
     Indication: DIABETES MELLITUS
  8. NATEGLINIDE [Concomitant]
     Indication: DIABETES MELLITUS
  9. PROCYCLIDINE HYDROCHLORIDE 2MG TAB [Concomitant]
     Indication: EXTRAPYRAMIDAL DISORDER
  10. RISPERIDONE [Concomitant]
  11. SIMVASTATIN [Concomitant]

REACTIONS (3)
  - BRADYCARDIA [None]
  - LOSS OF CONSCIOUSNESS [None]
  - SYNCOPE [None]
